FAERS Safety Report 16025299 (Version 4)
Quarter: 2019Q2

REPORT INFORMATION
  Report Type: Spontaneous
  Country: US (occurrence: US)
  Receive Date: 20190301
  Receipt Date: 20190429
  Transmission Date: 20190711
  Serious: Yes (Other)
  Sender: FDA-Public Use
  Company Number: US-PFIZER INC-2019089260

PATIENT
  Age: 64 Year
  Sex: Female

DRUGS (1)
  1. XELJANZ XR [Suspect]
     Active Substance: TOFACITINIB CITRATE
     Indication: RHEUMATOID ARTHRITIS
     Dosage: 11 MG, DAILY
     Route: 048

REACTIONS (7)
  - Lower respiratory tract infection [Unknown]
  - Malaise [Unknown]
  - Limb injury [Unknown]
  - Condition aggravated [Unknown]
  - Pain [Unknown]
  - Loss of personal independence in daily activities [Unknown]
  - Feeling abnormal [Unknown]
